FAERS Safety Report 12162655 (Version 3)
Quarter: 2016Q2

REPORT INFORMATION
  Report Type: Spontaneous
  Country: US (occurrence: US)
  Receive Date: 20160309
  Receipt Date: 20160426
  Transmission Date: 20160815
  Serious: No
  Sender: FDA-Public Use
  Company Number: US-PFIZER INC-2016143710

PATIENT
  Age: 60 Year
  Sex: Female

DRUGS (9)
  1. SUTENT [Suspect]
     Active Substance: SUNITINIB MALATE
     Indication: PARAGANGLION NEOPLASM
  2. LEVOTHYROXINE SODIUM. [Concomitant]
     Active Substance: LEVOTHYROXINE SODIUM
     Dosage: UNK
  3. ALPRAZOLAM. [Concomitant]
     Active Substance: ALPRAZOLAM
     Dosage: UNK
  4. SUTENT [Suspect]
     Active Substance: SUNITINIB MALATE
     Indication: LUNG NEOPLASM MALIGNANT
  5. TRAZODONE HYDROCHLORIDE. [Concomitant]
     Active Substance: TRAZODONE HYDROCHLORIDE
     Dosage: UNK
  6. SUTENT [Suspect]
     Active Substance: SUNITINIB MALATE
     Indication: NEOPLASM MALIGNANT
     Dosage: 50 MG, CYCLIC (DAILY FOR 2 WEEKS ON AND 1 WEEK OFF)
     Route: 048
  7. CITALOPRAM HYDROBROMIDE. [Concomitant]
     Active Substance: CITALOPRAM HYDROBROMIDE
     Dosage: UNK
  8. METOPROLOL TARTRATE. [Concomitant]
     Active Substance: METOPROLOL TARTRATE
     Dosage: UNK
  9. OXYCODONE HYDROCHLORIDE. [Concomitant]
     Active Substance: OXYCODONE HYDROCHLORIDE
     Dosage: UNK

REACTIONS (11)
  - Diarrhoea [Unknown]
  - Appetite disorder [Unknown]
  - Fatigue [Unknown]
  - Pain in extremity [Unknown]
  - Cough [Unknown]
  - Sneezing [Unknown]
  - Product use issue [Unknown]
  - Arthralgia [Unknown]
  - Epistaxis [Unknown]
  - Blister [Unknown]
  - Asthenia [Unknown]
